FAERS Safety Report 9510962 (Version 6)
Quarter: 2014Q2

REPORT INFORMATION
  Report Type: Report from Study
  Country: BR (occurrence: BR)
  Receive Date: 20130910
  Receipt Date: 20140618
  Transmission Date: 20141212
  Serious: Yes (Hospitalization, Other)
  Sender: FDA-Public Use
  Company Number: BR-ROCHE-1272292

PATIENT
  Age: 37 Year
  Sex: Male
  Weight: 52 kg

DRUGS (6)
  1. ACTEMRA [Suspect]
     Indication: RHEUMATOID ARTHRITIS
     Dosage: LAST INFUSION:02-AUG-2013
     Route: 065
     Dates: start: 201210
  2. PREDNISONE [Concomitant]
  3. DIPYRONE [Concomitant]
  4. PANTOPRAZOL [Concomitant]
  5. LOSARTAN [Concomitant]
  6. HYDROCHLOROTHIAZIDE [Concomitant]

REACTIONS (11)
  - Tibia fracture [Recovering/Resolving]
  - Tracheal injury [Unknown]
  - Gastric haemorrhage [Recovered/Resolved with Sequelae]
  - Lower limb fracture [Recovered/Resolved]
  - Fall [Unknown]
  - Aphasia [Unknown]
  - Gamma-glutamyltransferase increased [Recovering/Resolving]
  - Cholelithiasis [Not Recovered/Not Resolved]
  - Hypertension [Not Recovered/Not Resolved]
  - Pain [Not Recovered/Not Resolved]
  - Back pain [Not Recovered/Not Resolved]
